FAERS Safety Report 10029798 (Version 2)
Quarter: 2014Q2

REPORT INFORMATION
  Report Type: Report from Study
  Country: US (occurrence: None)
  Receive Date: 20140320
  Receipt Date: 20140416
  Transmission Date: 20141212
  Serious: Yes (Death, Congenital Anomaly, Other)
  Sender: FDA-Public Use
  Company Number: AUR-APL-2014-02946

PATIENT
  Sex: Female
  Weight: .81 kg

DRUGS (3)
  1. LAMIVUDINE [Suspect]
     Indication: ANTIRETROVIRAL THERAPY
     Dosage: 1 D
     Route: 064
  2. ABACAVIR [Suspect]
     Indication: ANTIRETROVIRAL THERAPY
     Dosage: 1 D
     Route: 064
  3. LOPINAVIR + RITONAVIR [Suspect]
     Indication: ANTIRETROVIRAL THERAPY
     Dosage: 4 TAB/CAPS, TRANSPLACENTAL
     Route: 064

REACTIONS (10)
  - Foetal exposure during pregnancy [None]
  - Cardiomegaly [None]
  - Premature baby [None]
  - Acute hepatic failure [None]
  - Renal failure [None]
  - Respiratory arrest [None]
  - Congenital anomaly [None]
  - Abdominal distension [None]
  - Pseudocyst [None]
  - Neural tube defect [None]
